FAERS Safety Report 8783143 (Version 3)
Quarter: 2013Q1

REPORT INFORMATION
  Report Type: Report from Study
  Country: JP (occurrence: JP)
  Receive Date: 20120913
  Receipt Date: 20130208
  Transmission Date: 20140127
  Serious: Yes (Other)
  Sender: FDA-Public Use
  Company Number: JP-VERTEX PHARMACEUTICAL INC.-2012-020876

PATIENT
  Age: 55 Year
  Sex: Male

DRUGS (14)
  1. VX-950 (TELAPREVIR) [Suspect]
     Indication: CHRONIC HEPATITIS C
     Dosage: 2250 MG, QD
     Route: 048
     Dates: start: 20120516, end: 20120707
  2. RIBAVIRIN [Suspect]
     Indication: CHRONIC HEPATITIS C
     Dosage: 600 MG, QD
     Route: 048
     Dates: start: 20120516, end: 20120529
  3. RIBAVIRIN [Suspect]
     Dosage: 200 MG, QD
     Route: 048
     Dates: start: 20120530, end: 20120707
  4. RIBAVIRIN [Suspect]
     Dosage: 200 MG, QD
     Route: 048
     Dates: start: 20120731
  5. PEGINTERFERON ALFA-2B [Suspect]
     Indication: CHRONIC HEPATITIS C
     Dosage: 1.4 ?G/KG, QW
     Route: 058
     Dates: start: 20120516, end: 20120703
  6. PEGINTERFERON ALFA-2B [Suspect]
     Dosage: 1.45 MCG/KG/WEEK, 80 MCG/DAY
     Route: 058
     Dates: start: 20120731
  7. PREDONINE [Suspect]
     Indication: ADVERSE EVENT
     Dosage: 20 MG, QD
     Route: 048
     Dates: start: 20120709, end: 20120716
  8. PREDONINE [Suspect]
     Dosage: 15 MG, QD
     Route: 048
     Dates: start: 20120717, end: 20120722
  9. PREDONINE [Suspect]
     Dosage: 10 MG, QD
     Route: 048
     Dates: start: 20120723, end: 20120730
  10. PREDONINE [Suspect]
     Dosage: 5 MG, QD
     Route: 048
     Dates: start: 20120731, end: 20120806
  11. PREDONINE [Suspect]
     Dosage: 2.5 MG, QD
     Route: 048
     Dates: start: 20120807, end: 20120814
  12. GASTER D [Concomitant]
     Dosage: 40 MG, QD
     Route: 048
     Dates: start: 20120709, end: 20120813
  13. MAGLAX [Concomitant]
     Dosage: 990 MG, QD
     Route: 048
     Dates: start: 20120523, end: 20120707
  14. MAGLAX [Concomitant]
     Dosage: 990 MG, QD
     Route: 048
     Dates: start: 20120814

REACTIONS (1)
  - Diabetes mellitus [Not Recovered/Not Resolved]
